FAERS Safety Report 20046695 (Version 1)
Quarter: 2021Q4

REPORT INFORMATION
  Report Type: Spontaneous
  Country: US (occurrence: US)
  Receive Date: 20211109
  Receipt Date: 20211109
  Transmission Date: 20220303
  Serious: Yes (Hospitalization)
  Sender: FDA-Public Use
  Company Number: None

PATIENT
  Age: 34 Year
  Sex: Male
  Weight: 64 kg

DRUGS (1)
  1. ACETAMINOPHEN [Suspect]
     Active Substance: ACETAMINOPHEN
     Indication: Product used for unknown indication
     Dosage: TOTAL DOSE 120000 MG CHRONIC USE FOR 30 DAYS
     Route: 048
     Dates: end: 19981204

REACTIONS (2)
  - Acute hepatic failure [Recovered/Resolved]
  - Accidental overdose [Recovered/Resolved]
